FAERS Safety Report 20536628 (Version 1)
Quarter: 2022Q1

REPORT INFORMATION
  Report Type: Spontaneous
  Country: JP (occurrence: JP)
  Receive Date: 20220302
  Receipt Date: 20220302
  Transmission Date: 20220423
  Serious: Yes (Other)
  Sender: FDA-Public Use
  Company Number: JP-NOVARTISPH-NVSJ2021JP017796

PATIENT
  Sex: Female

DRUGS (6)
  1. TAFINLAR [Suspect]
     Active Substance: DABRAFENIB MESYLATE
     Indication: Malignant melanoma
     Dosage: 300 MG
     Route: 048
     Dates: start: 20210625, end: 20211028
  2. TAFINLAR [Suspect]
     Active Substance: DABRAFENIB MESYLATE
     Dosage: 300 MG
     Route: 048
     Dates: start: 20211102, end: 20220119
  3. MEKINIST [Suspect]
     Active Substance: TRAMETINIB DIMETHYL SULFOXIDE
     Indication: Malignant melanoma
     Dosage: 2 MG
     Route: 048
     Dates: start: 20210625, end: 20211028
  4. MEKINIST [Suspect]
     Active Substance: TRAMETINIB DIMETHYL SULFOXIDE
     Dosage: 2 MG
     Route: 048
     Dates: start: 20211102, end: 20220119
  5. ZOMETA [Suspect]
     Active Substance: ZOLEDRONIC ACID
     Indication: Metastases to bone
     Dosage: 4 MG
     Route: 041
     Dates: start: 202201
  6. DECADRON [Concomitant]
     Active Substance: DEXAMETHASONE
     Indication: Product used for unknown indication
     Dosage: UNK
     Route: 041
     Dates: start: 202202

REACTIONS (11)
  - Melanoma recurrent [Recovered/Resolved]
  - Metastases to central nervous system [Not Recovered/Not Resolved]
  - Metastases to lung [Not Recovered/Not Resolved]
  - Metastases to gastrointestinal tract [Not Recovered/Not Resolved]
  - Metastases to bone [Not Recovered/Not Resolved]
  - Metastases to liver [Not Recovered/Not Resolved]
  - Malignant melanoma [Not Recovered/Not Resolved]
  - Malignant neoplasm progression [Not Recovered/Not Resolved]
  - Anaemia [Not Recovered/Not Resolved]
  - Leukoderma [Not Recovered/Not Resolved]
  - Drug ineffective [Unknown]

NARRATIVE: CASE EVENT DATE: 20210601
